FAERS Safety Report 6341694-3 (Version None)
Quarter: 2009Q3

REPORT INFORMATION
  Report Type: 
  Country: None (occurrence: None)
  Receive Date: 20090904
  Receipt Date: 20090825
  Transmission Date: 20100115
  Serious: Yes (Hospitalization, Other)
  Sender: FDA-Public Use
  Company Number: GB-NOVOPROD-288965

PATIENT
  Age: 14 Year
  Sex: Female
  Weight: 78 kg

DRUGS (10)
  1. NOVOLOG [Suspect]
     Indication: TYPE 1 DIABETES MELLITUS
     Dosage: 30 IU, QD
     Route: 058
     Dates: start: 20090601
  2. NOVOLOG [Suspect]
     Dosage: 136 IU, QD
  3. NOVOLOG [Suspect]
     Dosage: LESS THAN 100 IU/QD
  4. NOVOMIX 30 FLEXPEN [Suspect]
     Indication: TYPE 1 DIABETES MELLITUS
     Dosage: 120 IU, QD
     Route: 058
     Dates: start: 20090601
  5. NOVOMIX 30 FLEXPEN [Suspect]
  6. NOVOMIX 30 FLEXPEN [Suspect]
     Dosage: 42 IU, TID
     Route: 058
  7. NOVOMIX 30 FLEXPEN [Suspect]
     Dosage: 98 IU, QD (50+48)
     Route: 058
  8. NOVOMIX 30 FLEXPEN [Suspect]
     Dosage: 58 IU, QD
     Route: 058
  9. EPIPEN                             /00003901/ [Concomitant]
     Indication: FOOD ALLERGY
  10. LEVEMIR [Concomitant]
     Indication: TYPE 1 DIABETES MELLITUS
     Dosage: 28 IU, QD
     Route: 058

REACTIONS (17)
  - ANTI-INSULIN ANTIBODY POSITIVE [None]
  - BLOOD GLUCOSE INCREASED [None]
  - BLOOD INSULIN INCREASED [None]
  - BLOOD SODIUM DECREASED [None]
  - DEVICE BREAKAGE [None]
  - DIABETIC KETOACIDOSIS [None]
  - DRUG INEFFECTIVE [None]
  - FALL [None]
  - HYPERSENSITIVITY [None]
  - HYPOGLYCAEMIA [None]
  - INCREASED INSULIN REQUIREMENT [None]
  - INSULIN C-PEPTIDE DECREASED [None]
  - OVERDOSE [None]
  - PRODUCT TAMPERING [None]
  - PRURITUS [None]
  - SWELLING FACE [None]
  - WRONG TECHNIQUE IN DRUG USAGE PROCESS [None]
